FAERS Safety Report 6697264-0 (Version None)
Quarter: 2010Q2

REPORT INFORMATION
  Report Type: 
  Country: None (occurrence: None)
  Receive Date: 20100426
  Receipt Date: 20100414
  Transmission Date: 20101027
  Serious: Yes (Hospitalization)
  Sender: FDA-Public Use
  Company Number: GB-PFIZER INC-2010046845

PATIENT
  Age: 90 Year
  Sex: Male

DRUGS (5)
  1. GABAPENTIN [Suspect]
     Indication: TRIGEMINAL NEURALGIA
     Dosage: 1.2 G, 1X/DAY
     Route: 048
     Dates: start: 20100319, end: 20100401
  2. ALENDRONIC ACID [Concomitant]
     Dosage: 70 MG, 1X/DAY
     Route: 048
  3. CLOPIDOGREL [Concomitant]
     Dosage: 75 MG, 1X/DAY
     Route: 048
  4. OMEPRAZOLE [Concomitant]
     Dosage: 40 MG, 1X/DAY
     Route: 048
  5. SIMVASTATIN [Concomitant]
     Dosage: 40 MG, 1X/DAY
     Route: 048

REACTIONS (2)
  - ABDOMINAL PAIN [None]
  - PANCYTOPENIA [None]
